FAERS Safety Report 8254347-1 (Version None)
Quarter: 2012Q2

REPORT INFORMATION
  Report Type: 
  Country: None (occurrence: None)
  Receive Date: 20120402
  Receipt Date: 20120323
  Transmission Date: 20120825
  Serious: No
  Sender: FDA-Public Use
  Company Number: US-AMGEN-USASP2012019060

PATIENT
  Sex: Female

DRUGS (1)
  1. ENBREL [Suspect]
     Indication: CHRONIC RECURRENT MULTIFOCAL OSTEOMYELITIS
     Dosage: 25 MG, 2 TIMES/WK
     Dates: start: 20110701

REACTIONS (1)
  - PNEUMONIA [None]
